FAERS Safety Report 8917087 (Version 2)
Quarter: 2013Q1

REPORT INFORMATION
  Report Type: Report from Study
  Country: DE (occurrence: DE)
  Receive Date: 20121120
  Receipt Date: 20130205
  Transmission Date: 20140127
  Serious: Yes (Life-Threatening, Hospitalization)
  Sender: FDA-Public Use
  Company Number: DE-ROCHE-1156125

PATIENT
  Age: 72 Year
  Sex: Female
  Weight: 93.5 kg

DRUGS (1)
  1. METHOXY POLYETHYLENE GLYCOL-EPOETIN BETA [Suspect]
     Indication: NEPHROGENIC ANAEMIA
     Route: 042
     Dates: start: 20111004

REACTIONS (5)
  - Fall [Unknown]
  - Cerebral haemorrhage [Recovering/Resolving]
  - Skull fracture [Recovering/Resolving]
  - Infection [Recovering/Resolving]
  - Haemoglobin decreased [Recovering/Resolving]
